FAERS Safety Report 24235444 (Version 13)
Quarter: 2025Q2

REPORT INFORMATION
  Report Type: Spontaneous
  Country: PL (occurrence: PL)
  Receive Date: 20240821
  Receipt Date: 20250529
  Transmission Date: 20250717
  Serious: Yes (Hospitalization, Other)
  Sender: ORGANON
  Company Number: PL-SYNOPTIS-050-L-0003

PATIENT
  Age: 31 Year
  Sex: Female

DRUGS (105)
  1. MIRTAZAPINE [Interacting]
     Active Substance: MIRTAZAPINE
     Indication: Insomnia
     Dosage: 30 MILLIGRAM, FOR 24 HOURS (Q24H)/QD (NIGHT)
     Route: 065
  2. MIRTAZAPINE [Interacting]
     Active Substance: MIRTAZAPINE
     Indication: Depression
  3. AMLODIPINE [Interacting]
     Active Substance: AMLODIPINE BESYLATE
     Indication: Hypertension
     Dosage: 10 MILLIGRAM, QD
     Route: 065
  4. AMLODIPINE [Interacting]
     Active Substance: AMLODIPINE BESYLATE
     Route: 065
  5. AMLODIPINE [Interacting]
     Active Substance: AMLODIPINE BESYLATE
     Route: 065
  6. RAMIPRIL [Interacting]
     Active Substance: RAMIPRIL
     Indication: Hypertension
     Dosage: 10 MG, QD
     Route: 065
  7. RAMIPRIL [Interacting]
     Active Substance: RAMIPRIL
     Dosage: 10 MG, QD
     Route: 065
  8. SERTRALINE [Interacting]
     Active Substance: SERTRALINE HYDROCHLORIDE
     Indication: Insomnia
     Dosage: 100 MG/D IN THE MORNING
     Route: 065
  9. SERTRALINE [Interacting]
     Active Substance: SERTRALINE HYDROCHLORIDE
     Indication: Depression
     Dosage: 100 MILLIGRAM, QD, IN THE MORNING
     Route: 065
  10. KETOPROFEN [Suspect]
     Active Substance: KETOPROFEN
     Indication: Oropharyngeal pain
     Route: 042
  11. KETOPROFEN [Suspect]
     Active Substance: KETOPROFEN
     Indication: Product used for unknown indication
     Route: 042
  12. KETOPROFEN [Suspect]
     Active Substance: KETOPROFEN
     Route: 042
  13. KETOPROFEN [Suspect]
     Active Substance: KETOPROFEN
     Route: 042
  14. KETOPROFEN [Suspect]
     Active Substance: KETOPROFEN
     Route: 042
  15. KETOPROFEN [Suspect]
     Active Substance: KETOPROFEN
     Route: 042
  16. KETOPROFEN [Suspect]
     Active Substance: KETOPROFEN
     Route: 065
  17. NALTREXONE [Interacting]
     Active Substance: NALTREXONE
     Indication: Insomnia
  18. NALTREXONE [Interacting]
     Active Substance: NALTREXONE
     Indication: Depression
  19. NALTREXONE [Interacting]
     Active Substance: NALTREXONE
     Indication: Product used for unknown indication
  20. DICLOFENAC [Interacting]
     Active Substance: DICLOFENAC
     Indication: Throat irritation
     Route: 065
  21. DICLOFENAC [Interacting]
     Active Substance: DICLOFENAC
     Indication: Dysphagia
     Route: 065
  22. DICLOFENAC [Interacting]
     Active Substance: DICLOFENAC
     Indication: Oropharyngeal pain
     Route: 065
  23. DICLOFENAC [Interacting]
     Active Substance: DICLOFENAC
     Route: 065
  24. METAMIZOLE [Suspect]
     Active Substance: METAMIZOLE
     Indication: Oropharyngeal pain
     Route: 042
  25. METAMIZOLE [Suspect]
     Active Substance: METAMIZOLE
     Indication: Product used for unknown indication
     Route: 065
  26. METAMIZOLE [Suspect]
     Active Substance: METAMIZOLE
     Route: 065
  27. METAMIZOLE [Suspect]
     Active Substance: METAMIZOLE
     Route: 065
  28. BUPROPION HYDROCHLORIDE\NALTREXONE HYDROCHLORIDE [Interacting]
     Active Substance: BUPROPION HYDROCHLORIDE\NALTREXONE HYDROCHLORIDE
     Indication: Depression
     Route: 065
  29. BUPROPION HYDROCHLORIDE\NALTREXONE HYDROCHLORIDE [Interacting]
     Active Substance: BUPROPION HYDROCHLORIDE\NALTREXONE HYDROCHLORIDE
     Indication: Insomnia
     Route: 065
  30. BUPROPION HYDROCHLORIDE\NALTREXONE HYDROCHLORIDE [Interacting]
     Active Substance: BUPROPION HYDROCHLORIDE\NALTREXONE HYDROCHLORIDE
     Indication: Weight control
  31. BUPROPION HYDROCHLORIDE\NALTREXONE HYDROCHLORIDE [Interacting]
     Active Substance: BUPROPION HYDROCHLORIDE\NALTREXONE HYDROCHLORIDE
     Indication: Mental disorder
  32. AMOXICILLIN [Interacting]
     Active Substance: AMOXICILLIN
     Indication: Oropharyngeal pain
     Dosage: 3X1G (1 G, TID)
     Route: 048
  33. AMOXICILLIN [Interacting]
     Active Substance: AMOXICILLIN
     Indication: Dysphagia
     Dosage: 1 GRAM, Q8H
     Route: 048
  34. AMOXICILLIN [Interacting]
     Active Substance: AMOXICILLIN
     Indication: Throat irritation
     Dosage: 1 G, Q8H
     Route: 048
  35. ACETAMINOPHEN [Interacting]
     Active Substance: ACETAMINOPHEN
     Indication: Dysphagia
  36. ACETAMINOPHEN [Interacting]
     Active Substance: ACETAMINOPHEN
     Indication: Oropharyngeal pain
     Dosage: 1 GRAM, Q8H
     Route: 048
  37. ACETAMINOPHEN [Interacting]
     Active Substance: ACETAMINOPHEN
     Indication: Throat irritation
     Dosage: 1 G, TID
     Route: 048
  38. LIDOCAINE [Suspect]
     Active Substance: LIDOCAINE
     Indication: Dysphagia
  39. LIDOCAINE [Suspect]
     Active Substance: LIDOCAINE
     Indication: Oropharyngeal pain
     Route: 065
  40. LIDOCAINE [Suspect]
     Active Substance: LIDOCAINE
     Indication: Throat irritation
  41. LIDOCAINE [Suspect]
     Active Substance: LIDOCAINE
     Indication: Oropharyngeal pain
  42. ZOLPIDEM [Interacting]
     Active Substance: ZOLPIDEM TARTRATE
     Indication: Weight control
     Route: 065
  43. ZOLPIDEM [Interacting]
     Active Substance: ZOLPIDEM TARTRATE
     Indication: Mental disorder
     Route: 065
  44. ZOLPIDEM [Interacting]
     Active Substance: ZOLPIDEM TARTRATE
     Indication: Insomnia
     Route: 065
  45. ZOLPIDEM [Interacting]
     Active Substance: ZOLPIDEM TARTRATE
     Indication: Depression
  46. ZOLPIDEM [Interacting]
     Active Substance: ZOLPIDEM TARTRATE
     Indication: Product used for unknown indication
  47. SEMAGLUTIDE [Suspect]
     Active Substance: SEMAGLUTIDE
     Indication: Weight control
  48. SEMAGLUTIDE [Suspect]
     Active Substance: SEMAGLUTIDE
     Indication: Insomnia
     Route: 065
  49. SEMAGLUTIDE [Suspect]
     Active Substance: SEMAGLUTIDE
     Indication: Depression
  50. SEMAGLUTIDE [Suspect]
     Active Substance: SEMAGLUTIDE
     Indication: Mental disorder
     Route: 065
  51. SEMAGLUTIDE [Suspect]
     Active Substance: SEMAGLUTIDE
     Indication: Mental disorder
  52. SEMAGLUTIDE [Suspect]
     Active Substance: SEMAGLUTIDE
     Indication: Weight increased
  53. BUPROPION [Interacting]
     Active Substance: BUPROPION
     Indication: Depression
     Route: 065
  54. BUPROPION [Interacting]
     Active Substance: BUPROPION
     Indication: Insomnia
     Route: 065
  55. BUPROPION [Interacting]
     Active Substance: BUPROPION
     Indication: Product used for unknown indication
  56. AMBROXOL HYDROCHLORIDE [Suspect]
     Active Substance: AMBROXOL HYDROCHLORIDE
     Indication: Oropharyngeal pain
     Dates: start: 2024
  57. AMBROXOL HYDROCHLORIDE [Suspect]
     Active Substance: AMBROXOL HYDROCHLORIDE
     Indication: Neuralgia
  58. AMBROXOL HYDROCHLORIDE [Suspect]
     Active Substance: AMBROXOL HYDROCHLORIDE
     Indication: Mental disorder
     Route: 065
  59. AMOXICILLIN\CLAVULANATE POTASSIUM [Suspect]
     Active Substance: AMOXICILLIN\CLAVULANATE POTASSIUM
     Indication: Oropharyngeal pain
     Route: 065
  60. AMOXICILLIN\CLAVULANATE POTASSIUM [Suspect]
     Active Substance: AMOXICILLIN\CLAVULANATE POTASSIUM
     Indication: Throat irritation
     Dosage: 1 GRAM, Q8H
     Route: 048
  61. AMOXICILLIN\CLAVULANATE POTASSIUM [Suspect]
     Active Substance: AMOXICILLIN\CLAVULANATE POTASSIUM
     Indication: Dysphagia
  62. LIDOCAINE [Suspect]
     Active Substance: LIDOCAINE
     Route: 065
  63. LIDOCAINE [Suspect]
     Active Substance: LIDOCAINE
     Route: 048
  64. ACETAMINOPHEN [Interacting]
     Active Substance: ACETAMINOPHEN
     Indication: Oropharyngeal pain
     Dosage: 1 G, Q8H
     Route: 048
  65. ACETAMINOPHEN [Interacting]
     Active Substance: ACETAMINOPHEN
     Indication: Dysphagia
     Dosage: 1 G, Q8H
     Route: 048
  66. ACETAMINOPHEN [Interacting]
     Active Substance: ACETAMINOPHEN
     Indication: Throat irritation
  67. BUPROPION HYDROCHLORIDE\NALTREXONE HYDROCHLORIDE [Interacting]
     Active Substance: BUPROPION HYDROCHLORIDE\NALTREXONE HYDROCHLORIDE
     Indication: Weight control
     Route: 065
  68. BUPROPION HYDROCHLORIDE\NALTREXONE HYDROCHLORIDE [Interacting]
     Active Substance: BUPROPION HYDROCHLORIDE\NALTREXONE HYDROCHLORIDE
     Indication: Mental disorder
     Route: 065
  69. BUPROPION HYDROCHLORIDE\NALTREXONE HYDROCHLORIDE [Interacting]
     Active Substance: BUPROPION HYDROCHLORIDE\NALTREXONE HYDROCHLORIDE
     Indication: Depression
  70. BUPROPION HYDROCHLORIDE\NALTREXONE HYDROCHLORIDE [Interacting]
     Active Substance: BUPROPION HYDROCHLORIDE\NALTREXONE HYDROCHLORIDE
     Indication: Insomnia
  71. MAGNESIUM SULFATE [Concomitant]
     Active Substance: MAGNESIUM SULFATE
     Indication: Product used for unknown indication
     Route: 042
  72. MAGNESIUM SULFATE [Concomitant]
     Active Substance: MAGNESIUM SULFATE
     Route: 042
  73. MAGNESIUM SULFATE [Concomitant]
     Active Substance: MAGNESIUM SULFATE
     Route: 042
  74. MAGNESIUM SULFATE [Concomitant]
     Active Substance: MAGNESIUM SULFATE
     Route: 042
  75. MAGNESIUM SULFATE [Concomitant]
     Active Substance: MAGNESIUM SULFATE
     Route: 042
  76. MAGNESIUM SULFATE [Concomitant]
     Active Substance: MAGNESIUM SULFATE
     Route: 042
  77. MAGNESIUM SULFATE [Concomitant]
     Active Substance: MAGNESIUM SULFATE
     Route: 042
  78. MAGNESIUM SULFATE [Concomitant]
     Active Substance: MAGNESIUM SULFATE
     Route: 065
  79. ALPHA LIPOIC ACID [Concomitant]
     Active Substance: .ALPHA.-LIPOIC ACID
     Indication: Product used for unknown indication
     Route: 042
  80. ALPHA LIPOIC ACID [Concomitant]
     Active Substance: .ALPHA.-LIPOIC ACID
     Route: 065
  81. ALPHA LIPOIC ACID [Concomitant]
     Active Substance: .ALPHA.-LIPOIC ACID
     Route: 065
  82. ALPHA LIPOIC ACID [Concomitant]
     Active Substance: .ALPHA.-LIPOIC ACID
     Route: 065
  83. TIRZEPATIDE [Concomitant]
     Active Substance: TIRZEPATIDE
     Indication: Product used for unknown indication
     Route: 065
  84. TIRZEPATIDE [Concomitant]
     Active Substance: TIRZEPATIDE
     Route: 065
  85. TIRZEPATIDE [Concomitant]
     Active Substance: TIRZEPATIDE
     Route: 065
  86. TIRZEPATIDE [Concomitant]
     Active Substance: TIRZEPATIDE
     Route: 065
  87. TIRZEPATIDE [Concomitant]
     Active Substance: TIRZEPATIDE
     Route: 065
  88. DULOXETINE HYDROCHLORIDE [Concomitant]
     Active Substance: DULOXETINE HYDROCHLORIDE
     Indication: Product used for unknown indication
     Route: 065
  89. DULOXETINE HYDROCHLORIDE [Concomitant]
     Active Substance: DULOXETINE HYDROCHLORIDE
     Route: 065
  90. DULOXETINE HYDROCHLORIDE [Concomitant]
     Active Substance: DULOXETINE HYDROCHLORIDE
     Route: 065
  91. DULOXETINE HYDROCHLORIDE [Concomitant]
     Active Substance: DULOXETINE HYDROCHLORIDE
     Route: 065
  92. DULOXETINE HYDROCHLORIDE [Concomitant]
     Active Substance: DULOXETINE HYDROCHLORIDE
     Route: 065
  93. INDAPAMIDE [Concomitant]
     Active Substance: INDAPAMIDE
     Indication: Product used for unknown indication
     Route: 065
  94. INDAPAMIDE [Concomitant]
     Active Substance: INDAPAMIDE
     Route: 065
  95. INDAPAMIDE [Concomitant]
     Active Substance: INDAPAMIDE
     Route: 065
  96. INDAPAMIDE [Concomitant]
     Active Substance: INDAPAMIDE
     Route: 065
  97. INDAPAMIDE [Concomitant]
     Active Substance: INDAPAMIDE
     Route: 065
  98. TELMISARTAN [Concomitant]
     Active Substance: TELMISARTAN
     Indication: Product used for unknown indication
     Route: 065
  99. TELMISARTAN [Concomitant]
     Active Substance: TELMISARTAN
     Route: 065
  100. TELMISARTAN [Concomitant]
     Active Substance: TELMISARTAN
     Route: 065
  101. TELMISARTAN [Concomitant]
     Active Substance: TELMISARTAN
     Route: 065
  102. LIDOCAINE [Concomitant]
     Active Substance: LIDOCAINE
     Indication: Dysphagia
     Route: 065
  103. LIDOCAINE [Concomitant]
     Active Substance: LIDOCAINE
     Indication: Throat irritation
  104. LIDOCAINE [Concomitant]
     Active Substance: LIDOCAINE
     Indication: Oropharyngeal pain
  105. PASETOCIN [AMOXICILLIN] [Concomitant]
     Indication: Product used for unknown indication

REACTIONS (27)
  - Oropharyngeal pain [Recovering/Resolving]
  - Throat irritation [Recovering/Resolving]
  - Pain [Recovering/Resolving]
  - Condition aggravated [Recovering/Resolving]
  - Dysphagia [Recovering/Resolving]
  - Weight increased [Unknown]
  - Drug interaction [Recovering/Resolving]
  - Mental disorder [Unknown]
  - Drug ineffective [Unknown]
  - Food interaction [Recovering/Resolving]
  - Drug interaction [Unknown]
  - Medication error [Unknown]
  - Labelled drug-drug interaction medication error [Unknown]
  - Contraindicated product administered [Unknown]
  - Drug ineffective [Unknown]
  - Drug intolerance [Unknown]
  - Off label use [Unknown]
  - Off label use [Unknown]
  - Condition aggravated [Unknown]
  - Burning sensation [Not Recovered/Not Resolved]
  - Weight increased [Unknown]
  - Abdominal pain [Unknown]
  - Nausea [Unknown]
  - Increased appetite [Unknown]
  - Emotional distress [Unknown]
  - Throat irritation [Recovering/Resolving]
  - Weight increased [Unknown]
